FAERS Safety Report 5252592-0 (Version None)
Quarter: 2007Q1

REPORT INFORMATION
  Report Type: 
  Country: None (occurrence: None)
  Receive Date: 20070301
  Receipt Date: 20070223
  Transmission Date: 20070707
  Serious: Yes (Death, Hospitalization)
  Sender: FDA-Public Use
  Company Number: JP-JNJFOC-20031005966

PATIENT
  Sex: Male

DRUGS (23)
  1. REMICADE [Suspect]
     Route: 041
  2. REMICADE [Suspect]
     Route: 041
  3. REMICADE [Suspect]
     Route: 041
  4. REMICADE [Suspect]
     Route: 041
  5. REMICADE [Suspect]
     Route: 041
  6. REMICADE [Suspect]
     Route: 041
  7. REMICADE [Suspect]
     Route: 041
  8. REMICADE [Suspect]
     Route: 041
  9. REMICADE [Suspect]
     Route: 041
  10. REMICADE [Suspect]
     Route: 041
  11. REMICADE [Suspect]
     Route: 041
  12. REMICADE [Suspect]
     Route: 041
  13. REMICADE [Suspect]
     Route: 041
  14. REMICADE [Suspect]
     Route: 041
  15. REMICADE [Suspect]
     Route: 041
  16. REMICADE [Suspect]
     Route: 041
  17. REMICADE [Suspect]
     Route: 041
  18. REMICADE [Suspect]
     Route: 041
  19. REMICADE [Suspect]
     Indication: CROHN'S DISEASE
     Route: 041
  20. RHEUMATREX [Concomitant]
  21. IMRAN [Concomitant]
  22. HPN [Concomitant]
  23. FIRSTCIN [Concomitant]

REACTIONS (14)
  - CANDIDIASIS [None]
  - CARDIAC FAILURE CONGESTIVE [None]
  - CORYNEBACTERIUM INFECTION [None]
  - ENTEROCOCCAL INFECTION [None]
  - HAEMOLYTIC ANAEMIA [None]
  - HEPATIC FAILURE [None]
  - JAUNDICE [None]
  - METHICILLIN-RESISTANT STAPHYLOCOCCAL AUREUS TEST POSITIVE [None]
  - MYCOBACTERIUM AVIUM COMPLEX INFECTION [None]
  - PNEUMONIA [None]
  - PSEUDOMONAS INFECTION [None]
  - RENAL FAILURE [None]
  - SEPSIS [None]
  - STAPHYLOCOCCAL INFECTION [None]
